FAERS Safety Report 4650054-2 (Version None)
Quarter: 2005Q2

REPORT INFORMATION
  Report Type: 
  Country: None (occurrence: None)
  Receive Date: 20050428
  Receipt Date: 20050415
  Transmission Date: 20051028
  Serious: Yes (Hospitalization, Other)
  Sender: FDA-Public Use
  Company Number: 2005027411

PATIENT
  Age: 74 Year
  Sex: Male
  Weight: 50.8 kg

DRUGS (5)
  1. CABERGOLINE [Suspect]
     Indication: PARKINSON'S DISEASE
     Dosage: SEE IMAGE
     Route: 048
     Dates: start: 20041027, end: 20041109
  2. CABERGOLINE [Suspect]
     Indication: PARKINSON'S DISEASE
     Dosage: SEE IMAGE
     Route: 048
     Dates: start: 20040929, end: 20050130
  3. CABERGOLINE [Suspect]
     Indication: PARKINSON'S DISEASE
     Dosage: SEE IMAGE
     Route: 048
     Dates: start: 20041110, end: 20050131
  4. SENNA LEAF (SENNA LEAF) [Concomitant]
  5. HERBAL PREPARATION (HERBAL PREPARATION) [Concomitant]

REACTIONS (3)
  - DYSPNOEA EXERTIONAL [None]
  - PERICARDIAL EFFUSION [None]
  - PLEURAL EFFUSION [None]
